FAERS Safety Report 11214612 (Version 2)
Quarter: 2015Q3

REPORT INFORMATION
  Report Type: Report from Study
  Country: TH (occurrence: TH)
  Receive Date: 20150624
  Receipt Date: 20150706
  Transmission Date: 20151125
  Serious: Yes (Death)
  Sender: FDA-Public Use
  Company Number: PHHY2012TH072023

PATIENT
  Age: 76 Year
  Sex: Female
  Weight: 35.8 kg

DRUGS (1)
  1. GLIVEC [Suspect]
     Active Substance: IMATINIB MESYLATE
     Indication: GASTROINTESTINAL STROMAL TUMOUR
     Dosage: 400 MG,  4 TABLETS (2 TABLETS BEFORE DINNER AND 2 TABLETS AFTER DINNER THEN DRANK BIG GLASS OF WATER
     Route: 065
     Dates: start: 20120521, end: 20120621

REACTIONS (13)
  - Malignant neoplasm progression [Fatal]
  - Diarrhoea [Unknown]
  - Vulvovaginal swelling [Unknown]
  - Wound [Unknown]
  - Contusion [Unknown]
  - Gastrointestinal stromal tumour [Fatal]
  - Dizziness [Unknown]
  - Nausea [Unknown]
  - Weight increased [Unknown]
  - Peripheral swelling [Unknown]
  - Fatigue [Unknown]
  - Back pain [Unknown]
  - Pain [Unknown]

NARRATIVE: CASE EVENT DATE: 20120525
